FAERS Safety Report 15256728 (Version 1)
Quarter: 2018Q3

REPORT INFORMATION
  Report Type: Spontaneous
  Country: US (occurrence: US)
  Receive Date: 20180808
  Receipt Date: 20180808
  Transmission Date: 20181010
  Serious: Yes (Death, Hospitalization, Disabling)
  Sender: FDA-Public Use
  Company Number: US-JNJFOC-20180807161

PATIENT
  Age: 38 Year
  Sex: Female

DRUGS (2)
  1. INVOKANA [Suspect]
     Active Substance: CANAGLIFLOZIN
     Indication: TYPE 2 DIABETES MELLITUS
     Route: 048
     Dates: start: 20150925
  2. INVOKAMET [Suspect]
     Active Substance: CANAGLIFLOZIN\METFORMIN HYDROCHLORIDE
     Indication: TYPE 2 DIABETES MELLITUS
     Route: 048
     Dates: start: 201512, end: 201610

REACTIONS (5)
  - Acute kidney injury [Recovering/Resolving]
  - Neuropathic arthropathy [Unknown]
  - Cellulitis [Unknown]
  - Osteomyelitis [Unknown]
  - Leg amputation [Unknown]

NARRATIVE: CASE EVENT DATE: 201612
